FAERS Safety Report 7464483-5 (Version None)
Quarter: 2011Q2

REPORT INFORMATION
  Report Type: 
  Country: None (occurrence: None)
  Receive Date: 20110509
  Receipt Date: 20110425
  Transmission Date: 20111010
  Serious: Yes (Hospitalization)
  Sender: FDA-Public Use
  Company Number: US-JNJFOC-20110411663

PATIENT
  Sex: Male
  Weight: 77.11 kg

DRUGS (2)
  1. DURAGESIC-50 [Suspect]
     Route: 062
  2. DURAGESIC-50 [Suspect]
     Indication: SPINAL CORD INJURY
     Route: 062

REACTIONS (7)
  - RESPIRATORY FAILURE [None]
  - PROSTATE CANCER [None]
  - RESPIRATORY ARREST [None]
  - CEREBROVASCULAR ACCIDENT [None]
  - INTESTINAL PERFORATION [None]
  - ATRIAL FIBRILLATION [None]
  - APHASIA [None]
